FAERS Safety Report 9723375 (Version 3)
Quarter: 2015Q4

REPORT INFORMATION
  Report Type: Spontaneous
  Country: US (occurrence: US)
  Receive Date: 20131202
  Receipt Date: 20151215
  Transmission Date: 20160305
  Serious: Yes (Other)
  Sender: FDA-Public Use
  Company Number: US-GLAXOSMITHKLINE-A1043352A

PATIENT
  Age: 65 Year
  Sex: Female

DRUGS (11)
  1. ADVAIR HFA [Suspect]
     Active Substance: FLUTICASONE PROPIONATE\SALMETEROL XINAFOATE
     Indication: PNEUMONITIS
  2. WELLBUTRIN SR [Suspect]
     Active Substance: BUPROPION HYDROCHLORIDE
     Indication: POST-TRAUMATIC STRESS DISORDER
  3. WELLBUTRIN SR [Suspect]
     Active Substance: BUPROPION HYDROCHLORIDE
     Indication: ANXIETY
  4. FLONASE [Suspect]
     Active Substance: FLUTICASONE PROPIONATE
     Indication: CHRONIC SINUSITIS
     Dosage: 50 MCG AQUEOUS SPRAY90 MCG AQUEOUS SPRAYFU - 1 SPRAY INTRANASAL TWICE DAILY
     Route: 045
     Dates: start: 20060629
  5. WELLBUTRIN SR [Suspect]
     Active Substance: BUPROPION HYDROCHLORIDE
     Indication: DEPRESSION
     Dosage: 200 MG TABLETS
     Route: 048
     Dates: start: 2002
  6. ALBUTEROL. [Concomitant]
     Active Substance: ALBUTEROL
     Route: 055
  7. WELLBUTRIN SR [Suspect]
     Active Substance: BUPROPION HYDROCHLORIDE
     Indication: MAJOR DEPRESSION
  8. WELLBUTRIN [Suspect]
     Active Substance: BUPROPION HYDROCHLORIDE
  9. ADVAIR HFA [Suspect]
     Active Substance: FLUTICASONE PROPIONATE\SALMETEROL XINAFOATE
     Indication: CHRONIC OBSTRUCTIVE PULMONARY DISEASE
  10. VENTOLIN [Suspect]
     Active Substance: ALBUTEROL SULFATE
     Indication: LUNG DISORDER
     Route: 055
     Dates: start: 2007
  11. ADVAIR HFA [Suspect]
     Active Substance: FLUTICASONE PROPIONATE\SALMETEROL XINAFOATE
     Indication: DYSPNOEA
     Dosage: 250/50 MCG
     Route: 055
     Dates: start: 2007

REACTIONS (19)
  - Sinusitis [Not Recovered/Not Resolved]
  - Balance disorder [Unknown]
  - Cough [Unknown]
  - Pneumothorax [Unknown]
  - Head discomfort [Unknown]
  - Middle ear effusion [Unknown]
  - Cardiac failure congestive [Unknown]
  - Cold sweat [Unknown]
  - Oedema [Unknown]
  - Dysphonia [Not Recovered/Not Resolved]
  - Throat irritation [Not Recovered/Not Resolved]
  - Sinus disorder [Unknown]
  - Ear disorder [Unknown]
  - Respiratory tract congestion [Unknown]
  - Nasopharyngitis [Not Recovered/Not Resolved]
  - Dyspnoea [Unknown]
  - Depression [Unknown]
  - Drug administration error [Unknown]
  - Sleep disorder [Unknown]

NARRATIVE: CASE EVENT DATE: 201306
